FAERS Safety Report 13602264 (Version 1)
Quarter: 2017Q2

REPORT INFORMATION
  Report Type: Spontaneous
  Country: CA (occurrence: CA)
  Receive Date: 20170601
  Receipt Date: 20170601
  Transmission Date: 20170830
  Serious: Yes (Hospitalization)
  Sender: FDA-Public Use
  Company Number: CA-PFIZER INC-2017235285

PATIENT

DRUGS (2)
  1. ATIVAN [Suspect]
     Active Substance: LORAZEPAM
  2. LOXAPINE. [Suspect]
     Active Substance: LOXAPINE

REACTIONS (1)
  - Psychotic disorder [Unknown]
